FAERS Safety Report 4331772-2 (Version None)
Quarter: 2004Q2

REPORT INFORMATION
  Report Type: 
  Country: None (occurrence: None)
  Receive Date: 20040405
  Receipt Date: 20030711
  Transmission Date: 20050107
  Serious: No
  Sender: FDA-Public Use
  Company Number: US-GLAXOSMITHKLINE-A0416422A

PATIENT
  Sex: Female

DRUGS (10)
  1. FLOVENT [Suspect]
     Indication: ASTHMA
     Dosage: 220MCG TWICE PER DAY
     Route: 055
     Dates: start: 20030627
  2. CLARINEX [Concomitant]
  3. FLONASE [Concomitant]
  4. AMBIEN [Concomitant]
  5. FOSAMAX [Concomitant]
  6. LESCOL XL [Concomitant]
  7. ZOMIG [Concomitant]
  8. ANAPROX [Concomitant]
  9. MULTI-VITAMINS [Concomitant]
  10. PROTOPIC [Concomitant]

REACTIONS (1)
  - INTRAOCULAR PRESSURE INCREASED [None]
